FAERS Safety Report 8456651-0 (Version None)
Quarter: 2012Q2

REPORT INFORMATION
  Report Type: 
  Country: None (occurrence: None)
  Receive Date: 20120621
  Receipt Date: 20120612
  Transmission Date: 20120825
  Serious: Yes (Death, Hospitalization)
  Sender: FDA-Public Use
  Company Number: FR-ROCHE-760185

PATIENT
  Sex: Male
  Weight: 65 kg

DRUGS (26)
  1. ACETAMINOPHEN [Concomitant]
     Indication: LUNG NEOPLASM MALIGNANT
     Route: 048
  2. TRAMADOL HCL [Concomitant]
     Indication: LUNG NEOPLASM MALIGNANT
     Route: 048
  3. AMIODARONE HCL [Suspect]
     Indication: ARRHYTHMIA
     Route: 048
     Dates: start: 20110213, end: 20111208
  4. AMLODIPINE [Concomitant]
     Indication: CORONARY ARTERY DISEASE
     Dosage: ONGOING UNTIL TIME OF DEATH.
     Route: 048
     Dates: start: 20110101
  5. PANTOPRAZOLE [Concomitant]
     Indication: PROPHYLAXIS AGAINST GASTROINTESTINAL ULCER
     Dosage: ONGOING UNTIL TIME OF DEATH.
     Route: 048
  6. BISOPROLOL FUMARATE [Concomitant]
     Indication: CORONARY ARTERY DISEASE
     Route: 048
  7. BISOPROLOL FUMARATE [Concomitant]
     Dosage: ONGOING UNTIL TIME OF DEATH.
     Route: 048
  8. ASPIRIN [Concomitant]
     Indication: CORONARY ARTERY DISEASE
     Dosage: ONGOING UNTIL TIME OF DEATH.
     Route: 048
  9. ATORVASTATIN CALCIUM [Concomitant]
     Indication: CORONARY ARTERY DISEASE
     Dosage: ONGOING UNTIL TIME OF DEATH
     Route: 048
     Dates: start: 20101207
  10. BROMAZEPAM [Concomitant]
     Indication: ANXIETY
     Dosage: ONGOING UNTIL TIME OF DEATH.
     Route: 048
     Dates: start: 20110101
  11. CLOPIDOGREL [Concomitant]
     Indication: CORONARY ARTERY DISEASE
     Dosage: ONGOING UNTIL TIME OF DEATH
     Route: 048
  12. ENOXAPARINE SODIQUE [Concomitant]
     Indication: LUNG NEOPLASM MALIGNANT
     Route: 058
  13. VENOFER [Concomitant]
     Indication: ANAEMIA
     Route: 042
  14. IVABRADINE [Concomitant]
     Indication: CORONARY ARTERY DISEASE
     Route: 048
     Dates: start: 20110101, end: 20111207
  15. EPOETIN ALFA [Suspect]
     Indication: ANAEMIA
     Route: 058
     Dates: start: 20110207, end: 20110214
  16. FONDAPARINUX SODIUM [Concomitant]
     Indication: CORONARY ARTERY DISEASE
     Dosage: ONGOING UNTIL TIME OF DEATH
     Route: 058
     Dates: start: 20111207
  17. AVASTIN [Suspect]
     Indication: LUNG NEOPLASM MALIGNANT
     Route: 042
     Dates: start: 20101214, end: 20110125
  18. AMIODARONE HCL [Suspect]
     Indication: CORONARY ARTERY DISEASE
  19. CARBOPLATIN [Concomitant]
     Indication: LUNG NEOPLASM MALIGNANT
     Dosage: ONGOING UNTIL TIME OF DEATH.
     Route: 042
  20. NITROGLYCERIN [Concomitant]
     Indication: CORONARY ARTERY DISEASE
     Dosage: ONGOING UNTIL TIME OF DEATH.
     Route: 003
     Dates: start: 20110101
  21. ACID FOLIC [Concomitant]
     Indication: LUNG NEOPLASM MALIGNANT
     Route: 048
  22. TIOTROPIUM BROMIDE [Concomitant]
     Indication: CHRONIC OBSTRUCTIVE PULMONARY DISEASE
     Dosage: ONGOING UNTIL TIME OF DEATH
  23. PEGFILGRASTIM [Concomitant]
     Indication: LUNG NEOPLASM MALIGNANT
     Route: 058
     Dates: start: 20100105, end: 20100126
  24. ONDANSETRON [Concomitant]
     Indication: LUNG NEOPLASM MALIGNANT
     Route: 048
     Dates: start: 20100125, end: 20100130
  25. PACLITAXEL [Concomitant]
     Indication: LUNG NEOPLASM MALIGNANT
     Route: 042
     Dates: start: 20110125, end: 20110125
  26. CARBIMAZOLE [Concomitant]
     Indication: HYPERTHYROIDISM
     Dosage: ONGOING UNTIL TIME OF DEATH.
     Route: 048
     Dates: start: 20111214

REACTIONS (2)
  - HYPERTHYROIDISM [None]
  - ACUTE CORONARY SYNDROME [None]
